FAERS Safety Report 12210352 (Version 7)
Quarter: 2017Q2

REPORT INFORMATION
  Report Type: Spontaneous
  Country: JP (occurrence: JP)
  Receive Date: 20160325
  Receipt Date: 20170530
  Transmission Date: 20170830
  Serious: Yes (Hospitalization, Other)
  Sender: FDA-Public Use
  Company Number: JP-009507513-1603JPN011879

PATIENT
  Age: 79 Year
  Sex: Male

DRUGS (11)
  1. JANUVIA [Suspect]
     Active Substance: SITAGLIPTIN PHOSPHATE
     Indication: TYPE 2 DIABETES MELLITUS
     Dosage: 50 MG, QD
     Route: 048
     Dates: start: 201312, end: 20150911
  2. INSULIN [Concomitant]
     Active Substance: INSULIN NOS
     Dosage: UNK, AT THE TIME OF SURGERY
     Route: 041
     Dates: start: 201410, end: 201410
  3. LIPITOR [Concomitant]
     Active Substance: ATORVASTATIN CALCIUM
     Dosage: 5 MG, QD
     Route: 048
  4. PLAVIX [Concomitant]
     Active Substance: CLOPIDOGREL BISULFATE
     Dosage: 75 MG, QD
     Route: 048
  5. PROTECADIN [Concomitant]
     Active Substance: LAFUTIDINE
     Dosage: 10 MG, QD
     Route: 048
  6. PLETAAL [Concomitant]
     Active Substance: CILOSTAZOL
     Dosage: 100 MG, QD
     Route: 048
  7. URSODIOL. [Concomitant]
     Active Substance: URSODIOL
     Dosage: 300 MG, QD
     Route: 048
  8. INSULIN [Concomitant]
     Active Substance: INSULIN NOS
     Indication: TYPE 2 DIABETES MELLITUS
     Dosage: UNK
  9. ARTIST [Concomitant]
     Active Substance: CARVEDILOL
     Dosage: 10 MG, QD
     Route: 048
  10. AZILVA [Concomitant]
     Active Substance: AZILSARTAN KAMEDOXOMIL
     Dosage: 40 MG, QD
     Route: 048
  11. SOLDEM 3AG [Concomitant]
     Dosage: UNK
     Dates: start: 20151004, end: 20151004

REACTIONS (3)
  - Insulin autoimmune syndrome [Unknown]
  - Shock hypoglycaemic [Recovered/Resolved]
  - Coronary artery bypass [Unknown]

NARRATIVE: CASE EVENT DATE: 201410
